FAERS Safety Report 12088295 (Version 2)
Quarter: 2016Q1

REPORT INFORMATION
  Report Type: Spontaneous
  Country: JP (occurrence: JP)
  Receive Date: 20160218
  Receipt Date: 20160223
  Transmission Date: 20160526
  Serious: Yes (Death)
  Sender: FDA-Public Use
  Company Number: JP-ROCHE-1713010

PATIENT
  Age: 71 Year
  Sex: Female

DRUGS (2)
  1. PIPERACILLIN SODIUM [Suspect]
     Active Substance: PIPERACILLIN SODIUM
     Indication: PYREXIA
     Dosage: DOSAGE IS UNCERTAIN.
     Route: 065
  2. ROCEPHIN [Suspect]
     Active Substance: CEFTRIAXONE SODIUM
     Indication: PYREXIA
     Dosage: DOSAGE IS UNCERTAIN.
     Route: 042

REACTIONS (5)
  - Disseminated intravascular coagulation [Fatal]
  - Intestinal haemorrhage [Fatal]
  - Toxic epidermal necrolysis [Fatal]
  - Seizure [Fatal]
  - Septic shock [Fatal]
